FAERS Safety Report 17432280 (Version 2)
Quarter: 2020Q2

REPORT INFORMATION
  Report Type: Spontaneous
  Country: US (occurrence: US)
  Receive Date: 20200218
  Receipt Date: 20200608
  Transmission Date: 20200713
  Serious: No
  Sender: FDA-Public Use
  Company Number: US-SA-2020SA040050

PATIENT

DRUGS (13)
  1. DUPIXENT [Suspect]
     Active Substance: DUPILUMAB
     Indication: DERMATITIS ATOPIC
  2. VITAMIN D [VITAMIN D NOS] [Concomitant]
     Active Substance: VITAMIN D NOS
  3. DULOXETINE HCL [Concomitant]
     Active Substance: DULOXETINE HYDROCHLORIDE
  4. TRICOR [ADENOSINE] [Concomitant]
     Active Substance: ADENOSINE
  5. FISH OIL [Concomitant]
     Active Substance: FISH OIL
  6. GABAPENTIN. [Concomitant]
     Active Substance: GABAPENTIN
  7. DUPIXENT [Suspect]
     Active Substance: DUPILUMAB
     Indication: NEURODERMATITIS
     Dosage: 300 MG, QOW
     Route: 058
     Dates: start: 20190108
  8. LISINOPRIL. [Concomitant]
     Active Substance: LISINOPRIL
  9. MAGNESIUM [Concomitant]
     Active Substance: MAGNESIUM
  10. MUPIROCIN. [Concomitant]
     Active Substance: MUPIROCIN
  11. MULTIVITAMINS [VITAMINS NOS] [Concomitant]
     Active Substance: VITAMINS
  12. CLOBETASOL E [Concomitant]
  13. CLONAZEPAM. [Concomitant]
     Active Substance: CLONAZEPAM

REACTIONS (2)
  - Neurodermatitis [Unknown]
  - Dermatitis atopic [Unknown]
